FAERS Safety Report 13738046 (Version 1)
Quarter: 2017Q3

REPORT INFORMATION
  Report Type: Spontaneous
  Country: US (occurrence: US)
  Receive Date: 20170710
  Receipt Date: 20170710
  Transmission Date: 20171127
  Serious: Yes (Death, Hospitalization)
  Sender: FDA-Public Use
  Company Number: US-SA-2017SA119582

PATIENT
  Age: 71 Year
  Sex: Male

DRUGS (4)
  1. INCB024360 [Suspect]
     Active Substance: EPACADOSTAT
     Indication: NON-SMALL CELL LUNG CANCER
     Route: 048
     Dates: start: 20170206, end: 20170227
  2. LOVENOX [Suspect]
     Active Substance: ENOXAPARIN SODIUM
     Indication: PULMONARY EMBOLISM
     Route: 058
     Dates: start: 20161202
  3. NIVOLUMAB [Suspect]
     Active Substance: NIVOLUMAB
     Indication: NON-SMALL CELL LUNG CANCER
     Route: 042
     Dates: start: 20170206, end: 20170206
  4. NIVOLUMAB [Suspect]
     Active Substance: NIVOLUMAB
     Indication: NON-SMALL CELL LUNG CANCER
     Route: 042
     Dates: start: 20170227, end: 20170227

REACTIONS (8)
  - Atrial fibrillation [Unknown]
  - Haemorrhagic stroke [Unknown]
  - Dyspnoea [Unknown]
  - Tachycardia [Unknown]
  - Anaemia [Unknown]
  - Fatigue [Unknown]
  - Haemorrhage intracranial [Fatal]
  - Hypotension [Unknown]

NARRATIVE: CASE EVENT DATE: 20170316
